FAERS Safety Report 11505608 (Version 1)
Quarter: 2015Q3

REPORT INFORMATION
  Report Type: Spontaneous
  Country: US (occurrence: US)
  Receive Date: 20150915
  Receipt Date: 20150915
  Transmission Date: 20151125
  Serious: No
  Sender: FDA-Public Use
  Company Number: US-009507513-1509USA006132

PATIENT
  Age: 28 Year
  Sex: Female

DRUGS (1)
  1. IMPLANON [Suspect]
     Active Substance: ETONOGESTREL
     Indication: CONTRACEPTION
     Dosage: 1 DF,  (ONE IMPLANT, ONCE PER THREE YEARS)
     Dates: start: 20121214

REACTIONS (4)
  - Haemorrhagic disorder [Not Recovered/Not Resolved]
  - Device difficult to use [Unknown]
  - Medical device complication [Unknown]
  - Device deployment issue [Unknown]

NARRATIVE: CASE EVENT DATE: 20150910
